FAERS Safety Report 10064028 (Version 3)
Quarter: 2014Q2

REPORT INFORMATION
  Report Type: Report from Study
  Country: JP (occurrence: JP)
  Receive Date: 20140408
  Receipt Date: 20140604
  Transmission Date: 20141212
  Serious: Yes (Death, Hospitalization, Other)
  Sender: FDA-Public Use
  Company Number: JP-BRISTOL-MYERS SQUIBB COMPANY-16753030

PATIENT
  Age: 54 Year
  Sex: Female
  Weight: 55.5 kg

DRUGS (9)
  1. SPRYCEL [Suspect]
     Indication: ACUTE LYMPHOCYTIC LEUKAEMIA
     Dosage: 70 MG/DAY;70MGX2/D;50MGX2/D;
     Route: 048
     Dates: start: 20120518, end: 20120623
  2. URSO [Concomitant]
     Indication: ACUTE LYMPHOCYTIC LEUKAEMIA
     Route: 048
     Dates: end: 20120627
  3. PREDNISOLONE [Concomitant]
     Dosage: 2.5MG;07JUN2012-13JUN2012
     Route: 048
     Dates: start: 20120607, end: 20120717
  4. FAMOTIDINE [Concomitant]
     Indication: PROPHYLAXIS AGAINST GASTROINTESTINAL ULCER
     Route: 048
     Dates: end: 20120613
  5. AZEPTIN [Concomitant]
     Indication: NAUSEA
     Route: 048
     Dates: end: 20120627
  6. GASCON [Concomitant]
     Route: 048
     Dates: end: 20120127
  7. LASIX [Concomitant]
     Route: 048
     Dates: end: 20120523
  8. VFEND [Concomitant]
     Dosage: TAB;INJ
     Route: 048
     Dates: start: 20120530, end: 20120627
  9. MEROPENEM [Concomitant]
     Indication: INFECTION PROPHYLAXIS
     Route: 042
     Dates: start: 20120123, end: 20120706

REACTIONS (4)
  - Cerebral haemorrhage [Fatal]
  - Pancreatitis [Recovered/Resolved]
  - White blood cell count decreased [Recovering/Resolving]
  - Disseminated intravascular coagulation [Not Recovered/Not Resolved]
